FAERS Safety Report 17857175 (Version 1)
Quarter: 2020Q2

REPORT INFORMATION
  Report Type: Spontaneous
  Country: US (occurrence: US)
  Receive Date: 20200603
  Receipt Date: 20200603
  Transmission Date: 20200714
  Serious: No
  Sender: FDA-Public Use
  Company Number: US-GE HEALTHCARE LIFE SCIENCES-2020CSU001178

PATIENT
  Sex: Male

DRUGS (3)
  1. OMNIPAQUE [Suspect]
     Active Substance: IOHEXOL
     Indication: EPIDURAL INJECTION
     Dosage: UNK, SINGLE
     Route: 008
  2. OMNIPAQUE [Suspect]
     Active Substance: IOHEXOL
     Indication: PRODUCT USED FOR UNKNOWN INDICATION
  3. OMNIPAQUE [Suspect]
     Active Substance: IOHEXOL
     Indication: DIAGNOSTIC PROCEDURE

REACTIONS (1)
  - Injection site pain [Recovered/Resolved]
